FAERS Safety Report 13976112 (Version 1)
Quarter: 2017Q3

REPORT INFORMATION
  Report Type: Spontaneous
  Country: FR (occurrence: FR)
  Receive Date: 20170915
  Receipt Date: 20170915
  Transmission Date: 20171128
  Serious: Yes (Hospitalization)
  Sender: FDA-Public Use
  Company Number: FR-SA-2017SA132113

PATIENT
  Age: 68 Year
  Sex: Female

DRUGS (25)
  1. EVEROLIMUS [Suspect]
     Active Substance: EVEROLIMUS
     Route: 042
     Dates: start: 2010, end: 2014
  2. ENDOXAN [Suspect]
     Active Substance: CYCLOPHOSPHAMIDE
     Dosage: DAILY DOSE: 2000
     Route: 042
     Dates: start: 2015, end: 2015
  3. FASLODEX [Suspect]
     Active Substance: FULVESTRANT
     Route: 042
     Dates: start: 2014, end: 2014
  4. PALBOCICLIB [Suspect]
     Active Substance: PALBOCICLIB
     Route: 048
     Dates: start: 2016
  5. DOXORUBICIN [Suspect]
     Active Substance: DOXORUBICIN
     Route: 042
     Dates: start: 2000, end: 2000
  6. EXEMESTANE. [Suspect]
     Active Substance: EXEMESTANE
     Route: 048
     Dates: start: 2010, end: 2010
  7. AVASTIN [Suspect]
     Active Substance: BEVACIZUMAB
     Route: 042
     Dates: start: 2007, end: 2007
  8. FASLODEX [Suspect]
     Active Substance: FULVESTRANT
     Route: 042
     Dates: start: 2010, end: 2010
  9. GEMCITABINE HYDROCHLORIDE. [Suspect]
     Active Substance: GEMCITABINE HYDROCHLORIDE
     Route: 042
     Dates: start: 2017, end: 2017
  10. NAVELBINE [Suspect]
     Active Substance: VINORELBINE TARTRATE
     Route: 048
     Dates: start: 2010, end: 2014
  11. TASIGNA [Suspect]
     Active Substance: NILOTINIB
     Route: 048
     Dates: start: 2016
  12. PACLITAXEL. [Suspect]
     Active Substance: PACLITAXEL
     Route: 042
     Dates: start: 2010, end: 2010
  13. EXEMESTANE. [Suspect]
     Active Substance: EXEMESTANE
     Route: 048
     Dates: start: 2014, end: 2014
  14. FASLODEX [Suspect]
     Active Substance: FULVESTRANT
     Route: 042
     Dates: start: 2016, end: 2016
  15. ERIBULIN [Suspect]
     Active Substance: ERIBULIN
     Route: 042
     Dates: start: 2014, end: 2014
  16. ERIBULIN [Suspect]
     Active Substance: ERIBULIN
     Route: 042
     Dates: start: 2010, end: 2010
  17. TAMOXIFEN CITRATE. [Suspect]
     Active Substance: TAMOXIFEN CITRATE
     Route: 048
     Dates: start: 2014
  18. PACLITAXEL. [Suspect]
     Active Substance: PACLITAXEL
     Route: 042
     Dates: start: 2014, end: 2014
  19. GEMCITABINE HYDROCHLORIDE. [Suspect]
     Active Substance: GEMCITABINE HYDROCHLORIDE
     Route: 042
     Dates: start: 2017, end: 2017
  20. GEMCITABINE HYDROCHLORIDE. [Suspect]
     Active Substance: GEMCITABINE HYDROCHLORIDE
     Route: 042
     Dates: start: 2017, end: 2017
  21. AROMASIN [Suspect]
     Active Substance: EXEMESTANE
     Route: 048
     Dates: start: 2009, end: 2009
  22. TAMOXIFEN CITRATE. [Suspect]
     Active Substance: TAMOXIFEN CITRATE
     Route: 048
     Dates: start: 2000, end: 2003
  23. TAXOTERE [Suspect]
     Active Substance: DOCETAXEL
     Route: 042
     Dates: start: 2008, end: 2008
  24. ENDOXAN [Suspect]
     Active Substance: CYCLOPHOSPHAMIDE
     Dosage: DAILY DOSE: 2000
     Route: 042
     Dates: start: 2000, end: 2000
  25. XELODA [Suspect]
     Active Substance: CAPECITABINE
     Route: 042
     Dates: start: 2008

REACTIONS (1)
  - Acute myeloid leukaemia [Unknown]

NARRATIVE: CASE EVENT DATE: 201702
